FAERS Safety Report 23667444 (Version 1)
Quarter: 2024Q1

REPORT INFORMATION
  Report Type: Spontaneous
  Country: US (occurrence: US)
  Receive Date: 20240325
  Receipt Date: 20240325
  Transmission Date: 20240409
  Serious: Yes (Other)
  Sender: FDA-Public Use
  Company Number: US-TAKEDA-2024TUS025661

PATIENT
  Sex: Male

DRUGS (1)
  1. ADDERALL XR [Suspect]
     Active Substance: AMPHETAMINE ASPARTATE\AMPHETAMINE SULFATE\DEXTROAMPHETAMINE SACCHARATE\DEXTROAMPHETAMINE SULFATE
     Indication: Attention deficit hyperactivity disorder
     Dosage: 30 MILLIGRAM
     Route: 065

REACTIONS (7)
  - Crohn^s disease [Unknown]
  - Inflammatory bowel disease [Unknown]
  - Impaired gastric emptying [Unknown]
  - Gastrooesophageal reflux disease [Unknown]
  - Cystic fibrosis [Unknown]
  - Impaired work ability [Unknown]
  - Inability to afford medication [Unknown]
